FAERS Safety Report 24603934 (Version 1)
Quarter: 2024Q4

REPORT INFORMATION
  Report Type: Spontaneous
  Country: US (occurrence: None)
  Receive Date: 20241111
  Receipt Date: 20241111
  Transmission Date: 20250115
  Serious: Yes (Other)
  Sender: Public
  Company Number: None

PATIENT
  Sex: Female

DRUGS (10)
  1. ZARXIO [Suspect]
     Active Substance: FILGRASTIM-SNDZ
     Indication: Breast cancer female
     Dosage: FREQ: INJECT 0.8 ML (480 MCG TOTAL) UNDER THE SKIN 1 (ONE) TIME EACH DAY. POST CHEMO FOR 5 DAYS. CHE
     Dates: start: 20240718
  2. ACETAMINOPHE [Concomitant]
  3. ASPIRIN [Concomitant]
     Active Substance: ASPIRIN
  4. CAPECITBINE [Concomitant]
  5. CARVEDILOL [Concomitant]
     Active Substance: CARVEDILOL
  6. CHLORPROMAZ [Concomitant]
  7. COMPAZINE [Concomitant]
     Active Substance: PROCHLORPERAZINE MALEATE
  8. DIPHENHYDRAM [Concomitant]
  9. FASLODEX [Concomitant]
     Active Substance: FULVESTRANT
  10. FUROSEMIDE [Concomitant]
     Active Substance: FUROSEMIDE

REACTIONS (1)
  - Hepatic failure [None]
